FAERS Safety Report 14337927 (Version 1)
Quarter: 2017Q4

REPORT INFORMATION
  Report Type: Spontaneous
  Country: FI (occurrence: FI)
  Receive Date: 20171229
  Receipt Date: 20171229
  Transmission Date: 20180321
  Serious: Yes (Hospitalization, Other)
  Sender: FDA-Public Use
  Company Number: FI-NOVOPROD-579242

PATIENT
  Age: 24 Year
  Sex: Male
  Weight: 79 kg

DRUGS (2)
  1. ACTRAPID [Suspect]
     Active Substance: INSULIN HUMAN
     Indication: TYPE 1 DIABETES MELLITUS
     Dosage: BEFORE BREAKFAST, LUNCH, AND DINNER
     Route: 065
  2. PROTAPHANE [Suspect]
     Active Substance: INSULIN HUMAN
     Indication: TYPE 1 DIABETES MELLITUS
     Dosage: UNK AT BED TIME
     Route: 065

REACTIONS (4)
  - Blood glucose increased [Recovered/Resolved]
  - Hypoglycaemia [Unknown]
  - Insulin resistance [Recovered/Resolved]
  - Anti-insulin antibody increased [Recovered/Resolved]
